FAERS Safety Report 13672630 (Version 1)
Quarter: 2017Q2

REPORT INFORMATION
  Report Type: Spontaneous
  Country: US (occurrence: US)
  Receive Date: 20170621
  Receipt Date: 20170621
  Transmission Date: 20170830
  Serious: Yes (Hospitalization, Other)
  Sender: FDA-Public Use
  Company Number: US-ASTRAZENECA-2017SE62957

PATIENT
  Age: 772 Month
  Sex: Female

DRUGS (12)
  1. CALCIUM [Concomitant]
     Active Substance: CALCIUM
     Dosage: 500 MG (1250 MG)
  2. VITAMIN D3 [Concomitant]
     Active Substance: CHOLECALCIFEROL
     Dosage: 400 UNIT
  3. HYDRODIURIL [Concomitant]
     Active Substance: HYDROCHLOROTHIAZIDE
     Dosage: 25 MG
  4. LISINOPRIL. [Suspect]
     Active Substance: LISINOPRIL
     Dosage: 10.0MG UNKNOWN
     Route: 048
  5. PERCOCET [Concomitant]
     Active Substance: ACETAMINOPHEN\OXYCODONE HYDROCHLORIDE
     Dosage: 5-325 MG
  6. ZOMETA [Concomitant]
     Active Substance: ZOLEDRONIC ACID
     Dosage: EVERY 3 MONTHS
     Dates: end: 201606
  7. ARIMIDEX [Suspect]
     Active Substance: ANASTROZOLE
     Indication: BREAST CANCER
     Dosage: 1.0MG UNKNOWN
     Route: 048
     Dates: start: 201401, end: 201508
  8. IBRANCE [Suspect]
     Active Substance: PALBOCICLIB
     Indication: BREAST CANCER METASTATIC
     Dosage: 75.0MG UNKNOWN
     Route: 048
  9. IBRANCE [Suspect]
     Active Substance: PALBOCICLIB
     Indication: BREAST CANCER METASTATIC
     Dosage: TAKE WITH FOOD, 1 CAPSULE DAILY ON 1-21 DAYS, EVERY 28 DAYS
     Route: 048
     Dates: start: 201606
  10. TAMOXIFEN [Suspect]
     Active Substance: TAMOXIFEN
     Indication: INVASIVE DUCTAL BREAST CARCINOMA
     Route: 048
     Dates: start: 201004, end: 201401
  11. ACCUPRIL [Suspect]
     Active Substance: QUINAPRIL HYDROCHLORIDE
     Indication: BREAST CANCER METASTATIC
     Dosage: 20.0MG UNKNOWN
     Route: 065
  12. CRESTOR [Suspect]
     Active Substance: ROSUVASTATIN CALCIUM
     Dosage: 10.0MG UNKNOWN
     Route: 048

REACTIONS (11)
  - Cellulitis [Unknown]
  - Metastases to bone [Unknown]
  - Neutropenia [Unknown]
  - Abscess [Unknown]
  - Bone pain [Unknown]
  - Breast cancer female [Unknown]
  - Appendicitis [Unknown]
  - Anaemia [Unknown]
  - Incarcerated incisional hernia [Unknown]
  - Hypertension [Unknown]
  - Back pain [Unknown]

NARRATIVE: CASE EVENT DATE: 201604
